FAERS Safety Report 14938903 (Version 1)
Quarter: 2018Q2

REPORT INFORMATION
  Report Type: Spontaneous
  Country: GB (occurrence: GB)
  Receive Date: 20180525
  Receipt Date: 20180525
  Transmission Date: 20180711
  Serious: Yes (Other)
  Sender: FDA-Public Use
  Company Number: GB-BAYER-2018-096776

PATIENT
  Sex: Male

DRUGS (1)
  1. ACETYLSALICYLIC ACID({=100 MG) [Suspect]
     Active Substance: ASPIRIN
     Indication: PLACENTAL INSUFFICIENCY
     Route: 064

REACTIONS (3)
  - Encephalopathy neonatal [None]
  - Cerebral venous thrombosis [None]
  - Foetal exposure during pregnancy [None]
